FAERS Safety Report 25480610 (Version 1)
Quarter: 2025Q2

REPORT INFORMATION
  Report Type: Spontaneous
  Country: US (occurrence: US)
  Receive Date: 20250625
  Receipt Date: 20250625
  Transmission Date: 20250717
  Serious: Yes (Hospitalization, Disabling, Other)
  Sender: PFIZER
  Company Number: US-PFIZER INC-202500127144

PATIENT
  Age: 41 Year
  Sex: Female
  Weight: 90.72 kg

DRUGS (1)
  1. DEPO-PROVERA [Suspect]
     Active Substance: MEDROXYPROGESTERONE ACETATE

REACTIONS (20)
  - Rheumatoid arthritis [Unknown]
  - Sinusitis [Unknown]
  - Disability [Unknown]
  - Post-traumatic stress disorder [Unknown]
  - Vaginal haemorrhage [Unknown]
  - Heterogeneously dense breasts [Unknown]
  - Pain [Unknown]
  - Dysmenorrhoea [Unknown]
  - Pelvic floor dysfunction [Unknown]
  - Hair growth abnormal [Unknown]
  - Headache [Unknown]
  - Gastritis [Unknown]
  - Gastrooesophageal reflux disease [Unknown]
  - Bacterial infection [Unknown]
  - Dysphonia [Not Recovered/Not Resolved]
  - Condition aggravated [Unknown]
  - Adrenal gland injury [Unknown]
  - Back pain [Unknown]
  - Abdominal pain lower [Unknown]
  - Spinal pain [Unknown]

NARRATIVE: CASE EVENT DATE: 20150101
